FAERS Safety Report 24553450 (Version 1)
Quarter: 2024Q4

REPORT INFORMATION
  Report Type: Report from Study
  Country: US (occurrence: US)
  Receive Date: 20241028
  Receipt Date: 20241028
  Transmission Date: 20250114
  Serious: No
  Sender: ROCHE
  Company Number: US-ROCHE-3313297

PATIENT
  Sex: Female
  Weight: 98.0 kg

DRUGS (9)
  1. NUTROPIN AQ [Suspect]
     Active Substance: SOMATROPIN
     Indication: Growth hormone deficiency
     Dosage: TOOK SOMATROPIN UP UNTIL 4 YEARS AGO, STRENGTH : 5MG/2ML
     Route: 058
     Dates: start: 20230510
  2. NUTROPIN AQ [Suspect]
     Active Substance: SOMATROPIN
     Dosage: HAS BEEN OUT OF MEDICATION DUE TO INSURANCE ISSUES SINCE MARCH, ONGOING: NO
     Route: 058
     Dates: start: 20130225
  3. LEVOTHYROXINE [Concomitant]
     Active Substance: LEVOTHYROXINE
  4. LIOTHYRONINE [Concomitant]
     Active Substance: LIOTHYRONINE
  5. DULOXETINE [Concomitant]
     Active Substance: DULOXETINE
  6. ERGOCALCIFEROL [Concomitant]
     Active Substance: ERGOCALCIFEROL
  7. AMLODIPINE [Concomitant]
     Active Substance: AMLODIPINE BESYLATE
     Route: 048
  8. GABAPENTIN [Concomitant]
     Active Substance: GABAPENTIN
     Route: 048
  9. HUMATROPE [Concomitant]
     Active Substance: SOMATROPIN

REACTIONS (18)
  - Headache [Unknown]
  - Insomnia [Unknown]
  - Fatigue [Unknown]
  - Irritability [Unknown]
  - Dry eye [Unknown]
  - Obesity [Unknown]
  - Glycosylated haemoglobin increased [Unknown]
  - Carbon dioxide increased [Unknown]
  - Blood creatinine increased [Unknown]
  - Glomerular filtration rate decreased [Unknown]
  - Blood bilirubin decreased [Unknown]
  - Blood cholesterol increased [Unknown]
  - Blood triglycerides increased [Unknown]
  - Low density lipoprotein increased [Unknown]
  - Haematocrit increased [Unknown]
  - Blood thyroid stimulating hormone decreased [Unknown]
  - Thyroxine free decreased [Unknown]
  - Thyroxine free increased [Unknown]

NARRATIVE: CASE EVENT DATE: 20140430
